FAERS Safety Report 9889800 (Version 6)
Quarter: 2014Q2

REPORT INFORMATION
  Report Type: Spontaneous
  Country: CA (occurrence: CA)
  Receive Date: 20140212
  Receipt Date: 20140505
  Transmission Date: 20141212
  Serious: Yes (Hospitalization, Other)
  Sender: FDA-Public Use
  Company Number: CA-ROCHE-1346085

PATIENT
  Age: 45 Year
  Sex: Male

DRUGS (17)
  1. XOLAIR [Suspect]
     Indication: ASTHMA
     Route: 058
     Dates: start: 20120330
  2. XOLAIR [Suspect]
     Route: 058
     Dates: start: 20120807
  3. XOLAIR [Suspect]
     Route: 058
     Dates: start: 20130121
  4. XOLAIR [Suspect]
     Route: 058
     Dates: start: 20130627
  5. XOLAIR [Suspect]
     Route: 058
     Dates: start: 20130819
  6. XOLAIR [Suspect]
     Route: 058
     Dates: start: 20130903
  7. XOLAIR [Suspect]
     Route: 058
     Dates: start: 20130916
  8. XOLAIR [Suspect]
     Route: 058
     Dates: start: 20130930
  9. XOLAIR [Suspect]
     Route: 058
     Dates: start: 20131015
  10. XOLAIR [Suspect]
     Route: 058
     Dates: start: 20131028
  11. XOLAIR [Suspect]
     Route: 058
     Dates: start: 20131111
  12. XOLAIR [Suspect]
     Route: 058
     Dates: start: 20131125
  13. XOLAIR [Suspect]
     Route: 058
     Dates: start: 20131223
  14. XOLAIR [Suspect]
     Route: 058
     Dates: start: 20140106
  15. XOLAIR [Suspect]
     Route: 058
     Dates: start: 20140120
  16. XOLAIR [Suspect]
     Route: 058
     Dates: end: 20140203
  17. PREDNISONE [Concomitant]
     Dosage: 7.5 MG EVERY 2 DAYS FOR 30 DAYS
     Route: 065

REACTIONS (22)
  - Loss of consciousness [Unknown]
  - Weight decreased [Unknown]
  - Memory impairment [Unknown]
  - Asthma [Unknown]
  - Shock [Unknown]
  - Blood pressure increased [Not Recovered/Not Resolved]
  - Heart rate increased [Not Recovered/Not Resolved]
  - Dyspnoea [Unknown]
  - Musculoskeletal chest pain [Unknown]
  - Gastrointestinal disorder [Unknown]
  - Productive cough [Unknown]
  - Respiratory tract congestion [Not Recovered/Not Resolved]
  - Photophobia [Unknown]
  - Hypersensitivity [Not Recovered/Not Resolved]
  - Hyperhidrosis [Unknown]
  - Wheezing [Unknown]
  - Productive cough [Unknown]
  - Upper respiratory tract infection [Unknown]
  - Nasopharyngitis [Unknown]
  - Cough [Unknown]
  - Malaise [Unknown]
  - Drug ineffective [Unknown]
